FAERS Safety Report 6913444-0 (Version None)
Quarter: 2010Q3

REPORT INFORMATION
  Report Type: 
  Country: None (occurrence: None)
  Receive Date: 20100803
  Receipt Date: 20100729
  Transmission Date: 20110219
  Serious: Yes (Hospitalization)
  Sender: FDA-Public Use
  Company Number: 2010SP028613

PATIENT
  Age: 5 Year
  Sex: Male
  Weight: 16.8 kg

DRUGS (3)
  1. TEMOZOLOMIDE [Suspect]
     Indication: MEDULLOBLASTOMA RECURRENT
     Dosage: 55 MG; QD; PO
     Route: 048
     Dates: start: 20100301, end: 20100410
  2. IRINOTECAN HCL [Suspect]
     Indication: MEDULLOBLASTOMA
     Dosage: 5.5 MG; QD; IV
     Route: 042
     Dates: start: 20100301, end: 20100417
  3. JOSACINE [Concomitant]

REACTIONS (2)
  - BRONCHITIS [None]
  - COUGH [None]
